FAERS Safety Report 9751827 (Version 2)
Quarter: 2014Q1

REPORT INFORMATION
  Report Type: Spontaneous
  Country: DE (occurrence: DE)
  Receive Date: 20131213
  Receipt Date: 20140127
  Transmission Date: 20141002
  Serious: Yes (Other)
  Sender: FDA-Public Use
  Company Number: DE-ROCHE-1318378

PATIENT
  Age: 68 Year
  Sex: Female
  Weight: 72 kg

DRUGS (4)
  1. HERCEPTIN [Suspect]
     Indication: BREAST CANCER
     Route: 042
     Dates: start: 20090702, end: 20100624
  2. CARBOPLATIN [Concomitant]
     Indication: BREAST CANCER
     Route: 065
     Dates: start: 20090702, end: 20091015
  3. DOCETAXEL [Concomitant]
     Indication: BREAST CANCER
     Route: 065
     Dates: start: 20090702, end: 20091015
  4. DEXAMETHASON [Concomitant]
     Route: 065
     Dates: start: 20090702, end: 20091015

REACTIONS (2)
  - Acute myocardial infarction [Recovered/Resolved]
  - Malignant neoplasm progression [Unknown]
